FAERS Safety Report 17641396 (Version 1)
Quarter: 2020Q2

REPORT INFORMATION
  Report Type: Spontaneous
  Country: US (occurrence: US)
  Receive Date: 20200408
  Receipt Date: 20200408
  Transmission Date: 20200713
  Serious: No
  Sender: FDA-Public Use
  Company Number: US-CEDIPROF, INC.-2082478

PATIENT
  Age: 71 Year
  Sex: Female
  Weight: 84.55 kg

DRUGS (7)
  1. AMITRIPTYLINE HYDROCHLORIDE. [Suspect]
     Active Substance: AMITRIPTYLINE HYDROCHLORIDE
  2. DULOXETINE. [Concomitant]
     Active Substance: DULOXETINE
  3. PROCHLORPERAZINE. [Concomitant]
     Active Substance: PROCHLORPERAZINE
  4. LEVO-T [Suspect]
     Active Substance: LEVOTHYROXINE SODIUM
     Indication: THYROID DISORDER
  5. LETROZOLE. [Suspect]
     Active Substance: LETROZOLE
  6. PALBOCICLIB [Suspect]
     Active Substance: PALBOCICLIB
  7. PRAVASTATIN SODIUM. [Concomitant]
     Active Substance: PRAVASTATIN SODIUM

REACTIONS (6)
  - Cough [Not Recovered/Not Resolved]
  - Alopecia [Not Recovered/Not Resolved]
  - Thrombosis [Not Recovered/Not Resolved]
  - Fatigue [Not Recovered/Not Resolved]
  - Peripheral swelling [Not Recovered/Not Resolved]
  - Insomnia [Not Recovered/Not Resolved]
